FAERS Safety Report 14453809 (Version 4)
Quarter: 2018Q1

REPORT INFORMATION
  Report Type: Report from Study
  Country: TW (occurrence: TW)
  Receive Date: 20180129
  Receipt Date: 20180330
  Transmission Date: 20180509
  Serious: Yes (Death, Life-Threatening, Hospitalization)
  Sender: FDA-Public Use
  Company Number: TW-PFIZER INC-2018036194

PATIENT
  Age: 62 Year
  Sex: Female
  Weight: 66 kg

DRUGS (36)
  1. VORICONAZOLE. [Suspect]
     Active Substance: VORICONAZOLE
     Dosage: UNK
     Route: 065
  2. PNEUMOCOCCAL VACCINE POLYSACCH 23V [Concomitant]
     Dosage: UNK
     Route: 065
     Dates: start: 20171106, end: 20171106
  3. SINQUART [Concomitant]
     Dosage: UNK
     Route: 065
     Dates: start: 20170808, end: 20171205
  4. SUWELL [Concomitant]
     Dosage: UNK
     Route: 065
     Dates: start: 20171121, end: 20171123
  5. DOMPERIDONE [Concomitant]
     Active Substance: DOMPERIDONE
     Dosage: UNK
     Route: 065
     Dates: start: 20171020
  6. SWEET ALMOND OIL [Concomitant]
     Active Substance: ALMOND OIL
     Dosage: UNK
     Route: 065
     Dates: start: 20171104, end: 20171110
  7. CONJUGATED ESTROGENS [Concomitant]
     Active Substance: ESTROGENS, CONJUGATED
     Dosage: UNK
     Route: 065
     Dates: start: 20171018, end: 20171114
  8. DEXTROSE. [Concomitant]
     Active Substance: DEXTROSE
     Dosage: UNK
     Route: 065
     Dates: start: 20171207
  9. PREDNISOLONE. [Concomitant]
     Active Substance: PREDNISOLONE
     Dosage: UNK
     Route: 065
     Dates: start: 20160830
  10. CINNAMON. [Concomitant]
     Active Substance: CINNAMON
     Dosage: UNK
     Route: 065
     Dates: start: 20171104, end: 20171110
  11. LIQUIFILM TEARS [Concomitant]
     Active Substance: POLYVINYL ALCOHOL
     Dosage: UNK
     Route: 065
     Dates: start: 20170911
  12. CEPHADOL [Concomitant]
     Active Substance: DIPHENIDOL HYDROCHLORIDE
     Dosage: UNK
     Route: 065
     Dates: start: 20171017, end: 20171106
  13. DEXTROMETHORPHAN HYDROBROMIDE. [Concomitant]
     Active Substance: DEXTROMETHORPHAN HYDROBROMIDE
     Dosage: UNK
     Route: 065
     Dates: start: 20171204, end: 20171205
  14. METHOTREXATE. [Suspect]
     Active Substance: METHOTREXATE
     Indication: RHEUMATOID ARTHRITIS
     Dosage: 15 MG, UNK
     Route: 048
     Dates: start: 20161005, end: 20171205
  15. MEDROXYPROGESTERONE ACETATE. [Suspect]
     Active Substance: MEDROXYPROGESTERONE ACETATE
     Indication: MENOPAUSAL SYMPTOMS
     Dosage: UNK
     Route: 048
     Dates: start: 20171018, end: 20171114
  16. SMX/TMP [Suspect]
     Active Substance: SULFAMETHOXAZOLE\TRIMETHOPRIM
     Indication: PNEUMONIA
     Dosage: UNK
     Route: 042
     Dates: start: 20171206, end: 20171213
  17. FOLIC ACID. [Concomitant]
     Active Substance: FOLIC ACID
     Dosage: UNK
     Route: 065
     Dates: start: 20160906
  18. RANITIDINE. [Concomitant]
     Active Substance: RANITIDINE
     Dosage: UNK
     Route: 065
     Dates: start: 20171101
  19. SPERSIN /00038301/ [Concomitant]
     Dosage: UNK
     Route: 065
     Dates: start: 20171106, end: 20171205
  20. HYCOBAMIN [Concomitant]
     Dosage: UNK
     Route: 065
     Dates: start: 20171113, end: 20171115
  21. PILOCARPINE. [Concomitant]
     Active Substance: PILOCARPINE
     Dosage: UNK
     Route: 065
     Dates: start: 20170911
  22. MUCAINE /00115701/ [Concomitant]
     Dosage: UNK
     Dates: start: 20160830, end: 20171205
  23. PYRIDOXAL PHOSPHATE [Concomitant]
     Active Substance: PYRIDOXAL PHOSPHATE
     Dosage: UNK
     Route: 065
     Dates: start: 20171115, end: 20171115
  24. ACETAMINOPHEN. [Concomitant]
     Active Substance: ACETAMINOPHEN
     Dosage: UNK
     Route: 065
     Dates: start: 20171121
  25. HYDROCORTISONE. [Concomitant]
     Active Substance: HYDROCORTISONE
     Dosage: UNK
     Route: 065
     Dates: start: 20171206, end: 20171206
  26. HYDROXYCHLOROQUINE [Concomitant]
     Active Substance: HYDROXYCHLOROQUINE
     Dosage: UNK
     Route: 065
     Dates: start: 20160830
  27. ETORICOXIB [Concomitant]
     Active Substance: ETORICOXIB
     Dosage: UNK
     Route: 065
     Dates: start: 20160222
  28. OXAZOLAM [Concomitant]
     Active Substance: OXAZOLAM
     Dosage: UNK
     Route: 065
     Dates: start: 20170410
  29. VENLAFAXIN EASYPHARM [Concomitant]
     Dosage: UNK
     Route: 065
     Dates: start: 20170410, end: 20171205
  30. DIPHENHYDRAMINE. [Concomitant]
     Active Substance: DIPHENHYDRAMINE
     Dosage: UNK
     Route: 065
     Dates: start: 20171206, end: 20171206
  31. VAXIGRIP [Concomitant]
     Active Substance: INFLUENZA VIRUS VACCINE
     Dosage: UNK
     Route: 065
     Dates: start: 20171106, end: 20171106
  32. ESTAZOLAM. [Concomitant]
     Active Substance: ESTAZOLAM
     Dosage: UNK
     Route: 065
     Dates: start: 20170410, end: 20171205
  33. ASCORBIC ACID. [Concomitant]
     Active Substance: ASCORBIC ACID
     Dosage: UNK
     Route: 065
     Dates: start: 20171104, end: 20171110
  34. GENTAMYCIN [Concomitant]
     Active Substance: GENTAMICIN
     Dosage: UNK
     Route: 065
     Dates: start: 20170808, end: 20171205
  35. MEQUITAZINE [Concomitant]
     Active Substance: MEQUITAZINE
     Dosage: UNK
     Route: 065
     Dates: start: 20171204, end: 20171205
  36. BENZYDAMINE [Concomitant]
     Active Substance: BENZYDAMINE
     Dosage: UNK
     Route: 065
     Dates: start: 20171206, end: 20171209

REACTIONS (8)
  - Pneumonia [Fatal]
  - Acute kidney injury [Not Recovered/Not Resolved]
  - Pulmonary oedema [Not Recovered/Not Resolved]
  - Hypotension [Not Recovered/Not Resolved]
  - Septic shock [Fatal]
  - Acute respiratory failure [Not Recovered/Not Resolved]
  - Metabolic acidosis [Not Recovered/Not Resolved]
  - Pancreatitis acute [Not Recovered/Not Resolved]

NARRATIVE: CASE EVENT DATE: 20171206
